FAERS Safety Report 11003184 (Version 1)
Quarter: 2015Q2

REPORT INFORMATION
  Report Type: Spontaneous
  Country: IT (occurrence: None)
  Receive Date: 20150401
  Receipt Date: 20150401
  Transmission Date: 20150821
  Serious: Yes (Life-Threatening)
  Sender: FDA-Public Use
  Company Number: IG003088

PATIENT
  Age: 56 Year
  Sex: Female

DRUGS (1)
  1. FLEBOGAMMA DIF [Suspect]
     Active Substance: HUMAN IMMUNOGLOBULIN G
     Indication: HYPOGAMMAGLOBULINAEMIA
     Route: 042
     Dates: start: 20131210, end: 20150130

REACTIONS (4)
  - Bradycardia [None]
  - Chills [None]
  - Hypotension [None]
  - Hypoxia [None]

NARRATIVE: CASE EVENT DATE: 20150130
